FAERS Safety Report 4771164-5 (Version None)
Quarter: 2005Q3

REPORT INFORMATION
  Report Type: 
  Country: None (occurrence: None)
  Receive Date: 20050914
  Receipt Date: 20050825
  Transmission Date: 20060218
  Serious: Yes (Hospitalization)
  Sender: FDA-Public Use
  Company Number: US_0508120948

PATIENT
  Age: 57 Year
  Sex: Female
  Weight: 50 kg

DRUGS (18)
  1. PEMETREXED [Suspect]
     Indication: NON-SMALL CELL LUNG CANCER
     Dosage: 375 MG/M2
     Dates: start: 20050722, end: 20050805
  2. GEMCITABINE HYDROCHLORIDE-IV (GEMCITABINE) [Suspect]
     Indication: NON-SMALL CELL LUNG CANCER
     Dosage: 1125 MG/M2
     Dates: start: 20050722, end: 20050805
  3. ADVAIR DISKUS 100/50 [Concomitant]
  4. CERTAGEN [Concomitant]
  5. DEXAMETHASONE [Concomitant]
  6. FOLIC ACID [Concomitant]
  7. GABAPENTIN [Concomitant]
  8. ACETAMINOPHEN W/HYDROCODONE [Concomitant]
  9. LIDOCAINE [Concomitant]
  10. LOPERAMIDE [Concomitant]
  11. LORAZEPAM [Concomitant]
  12. MAGIC MOUTHWASH [Concomitant]
  13. MEGESTEROL ACETATE [Concomitant]
  14. MERCAPTOPURINE [Concomitant]
  15. PREDNISONE [Concomitant]
  16. PREMARIN [Concomitant]
  17. PREDNISONE [Concomitant]
  18. PROCHLORPERAZINE MALEATE [Concomitant]

REACTIONS (28)
  - ANAEMIA [None]
  - BODY TEMPERATURE INCREASED [None]
  - CELLULITIS [None]
  - CHILLS [None]
  - DIZZINESS [None]
  - ERYTHEMA [None]
  - EYE PAIN [None]
  - FEBRILE NEUTROPENIA [None]
  - GAIT DISTURBANCE [None]
  - HERPES SIMPLEX [None]
  - HYPOAESTHESIA [None]
  - LACRIMATION INCREASED [None]
  - LIMB INJURY [None]
  - MEMORY IMPAIRMENT [None]
  - NEUTROPHIL COUNT ABNORMAL [None]
  - OEDEMA PERIPHERAL [None]
  - OXYGEN SATURATION DECREASED [None]
  - PAIN IN EXTREMITY [None]
  - PARAESTHESIA [None]
  - PNEUMONIA [None]
  - SKIN LESION [None]
  - SKIN WARM [None]
  - SOMNOLENCE [None]
  - STAPHYLOCOCCAL INFECTION [None]
  - TREATMENT NONCOMPLIANCE [None]
  - TREMOR [None]
  - URINE LEUKOCYTE ESTERASE POSITIVE [None]
  - WHITE BLOOD CELLS URINE POSITIVE [None]
